FAERS Safety Report 21554856 (Version 2)
Quarter: 2022Q4

REPORT INFORMATION
  Report Type: Spontaneous
  Country: US (occurrence: US)
  Receive Date: 20221104
  Receipt Date: 20221110
  Transmission Date: 20230113
  Serious: Yes (Hospitalization)
  Sender: FDA-Public Use
  Company Number: US-drreddys-LIT/USA/22/0156801

PATIENT
  Age: 42 Year
  Sex: Female

DRUGS (5)
  1. ESZOPICLONE [Suspect]
     Active Substance: ESZOPICLONE
     Indication: Product used for unknown indication
  2. TIZANIDINE HYDROCHLORIDE [Suspect]
     Active Substance: TIZANIDINE HYDROCHLORIDE
     Indication: Product used for unknown indication
  3. HYDROXYZINE HYDROCHLORIDE [Suspect]
     Active Substance: HYDROXYZINE HYDROCHLORIDE
     Indication: Product used for unknown indication
  4. LEVETIRACETAM [Suspect]
     Active Substance: LEVETIRACETAM
     Indication: Seizure
  5. LORAZEPAM [Suspect]
     Active Substance: LORAZEPAM
     Indication: Seizure

REACTIONS (9)
  - Respiratory acidosis [Recovering/Resolving]
  - Areflexia [Recovering/Resolving]
  - Unresponsive to stimuli [Recovering/Resolving]
  - Encephalopathy [Recovering/Resolving]
  - Seizure [Recovering/Resolving]
  - Brain death [Recovering/Resolving]
  - Hypotension [Recovering/Resolving]
  - Overdose [Unknown]
  - Drug ineffective [Unknown]
